FAERS Safety Report 5324961-1 (Version None)
Quarter: 2007Q2

REPORT INFORMATION
  Report Type: 
  Country: None (occurrence: None)
  Receive Date: 20070509
  Receipt Date: 20070424
  Transmission Date: 20071010
  Serious: Yes (Other)
  Sender: FDA-Public Use
  Company Number: SPI200700220

PATIENT
  Age: 25 Year
  Sex: Female

DRUGS (4)
  1. AMITIZA [Suspect]
     Indication: CONSTIPATION
     Dosage: 24 MCG, BID, ORAL
     Route: 048
     Dates: start: 20070410, end: 20070410
  2. ADVAIR DISKUS 100/50 [Concomitant]
  3. RESTASIS (CICLOSPORIN) [Concomitant]
  4. ZELNORM /01470301 (TEGASEROD) [Concomitant]

REACTIONS (1)
  - ANAPHYLACTIC SHOCK [None]
